FAERS Safety Report 13930251 (Version 2)
Quarter: 2019Q4

REPORT INFORMATION
  Report Type: Report from Study
  Country: BR (occurrence: CO)
  Receive Date: 20170901
  Receipt Date: 20191230
  Transmission Date: 20200122
  Serious: Yes (Death, Hospitalization, Other)
  Sender: FDA-Public Use
  Company Number: CO-ASTELLAS-2017US035005

PATIENT
  Sex: Male
  Weight: 62 kg

DRUGS (1)
  1. TACROLIMUS. [Suspect]
     Active Substance: TACROLIMUS
     Indication: RENAL TRANSPLANT
     Dosage: 10 MG, ONCE DAILY (2 CAPSULES OF 5 MG CAPSULES EACH)
     Route: 048
     Dates: start: 20170128

REACTIONS (1)
  - Bacterial infection [Fatal]
